FAERS Safety Report 24093010 (Version 2)
Quarter: 2024Q3

REPORT INFORMATION
  Report Type: Spontaneous
  Country: JP (occurrence: JP)
  Receive Date: 20240715
  Receipt Date: 20240805
  Transmission Date: 20241017
  Serious: Yes (Other)
  Sender: PFIZER
  Company Number: JP-MLMSERVICE-20240703-PI120989-00218-1

PATIENT
  Age: 5 Decade
  Sex: Female

DRUGS (3)
  1. METHOTREXATE SODIUM [Suspect]
     Active Substance: METHOTREXATE SODIUM
     Indication: Disease recurrence
     Dosage: 100 MG/KG, HIGH DOSE, EVERY 2 WEEKS FOR A TOTAL OF 6 COURSES
  2. METHOTREXATE SODIUM [Suspect]
     Active Substance: METHOTREXATE SODIUM
     Indication: Diffuse large B-cell lymphoma
     Dosage: HIGH DOSE
  3. METHOTREXATE SODIUM [Suspect]
     Active Substance: METHOTREXATE SODIUM
     Indication: Central nervous system lymphoma

REACTIONS (3)
  - Renal tubular necrosis [Recovered/Resolved]
  - Renal impairment [Recovered/Resolved]
  - Chemotherapeutic drug level increased [Unknown]
